FAERS Safety Report 5304442-1 (Version None)
Quarter: 2007Q2

REPORT INFORMATION
  Report Type: 
  Country: None (occurrence: None)
  Receive Date: 20070423
  Receipt Date: 20070419
  Transmission Date: 20071010
  Serious: Yes (Other)
  Sender: FDA-Public Use
  Company Number: FR-BRISTOL-MYERS SQUIBB COMPANY-13755459

PATIENT
  Age: 70 Year
  Sex: Male

DRUGS (3)
  1. TAXOL [Suspect]
     Indication: LUNG NEOPLASM MALIGNANT
     Route: 042
  2. CARBOPLATIN [Concomitant]
     Indication: LUNG NEOPLASM MALIGNANT
  3. PERINDOPRIL ERBUMINE [Concomitant]

REACTIONS (8)
  - ARTHRALGIA [None]
  - BLOOD PRESSURE INCREASED [None]
  - BONE PAIN [None]
  - DRY EYE [None]
  - DRY MOUTH [None]
  - NEUTROPENIA [None]
  - RHINORRHOEA [None]
  - THROMBOCYTOPENIA [None]
